FAERS Safety Report 10835611 (Version 1)
Quarter: 2015Q1

REPORT INFORMATION
  Report Type: Spontaneous
  Country: US (occurrence: None)
  Receive Date: 20150218
  Receipt Date: 20150218
  Transmission Date: 20150721
  Serious: Yes (Hospitalization)
  Sender: FDA-Public Use
  Company Number: 2015SA015451

PATIENT
  Age: 17 Year
  Sex: Male

DRUGS (1)
  1. DIPHENHYDRAMINE / UNKNOWN / UNKNOWN [Suspect]
     Active Substance: DIPHENHYDRAMINE
     Indication: SUICIDE ATTEMPT

REACTIONS (7)
  - Major depression [None]
  - Dysuria [None]
  - Poisoning [None]
  - Psychotic disorder [None]
  - Hallucination [None]
  - Abnormal behaviour [None]
  - Agitation [None]
